FAERS Safety Report 24223037 (Version 1)
Quarter: 2024Q3

REPORT INFORMATION
  Report Type: Spontaneous
  Country: GB (occurrence: GB)
  Receive Date: 20240819
  Receipt Date: 20240819
  Transmission Date: 20241016
  Serious: Yes (Other)
  Sender: MYLAN
  Company Number: None

PATIENT
  Age: 34 Year
  Sex: Female
  Weight: 65 kg

DRUGS (3)
  1. DOXYCYCLINE [Suspect]
     Active Substance: DOXYCYCLINE\DOXYCYCLINE HYCLATE
     Indication: Infection prophylaxis
     Dosage: 100 MILLIGRAM, BID (100MG TWICE A DAY)
     Route: 065
  2. FERROUS FUMARATE [Concomitant]
     Active Substance: FERROUS FUMARATE
     Indication: Blood iron decreased
     Dosage: UNK
     Route: 065
  3. FLUTICASONE PROPIONATE\FORMOTEROL FUMARATE [Concomitant]
     Active Substance: FLUTICASONE PROPIONATE\FORMOTEROL FUMARATE
     Indication: Asthma
     Dosage: UNK
     Route: 065

REACTIONS (6)
  - Photosensitivity reaction [Recovering/Resolving]
  - Thermal burn [Unknown]
  - Blister [Unknown]
  - Skin hypertrophy [Unknown]
  - Sunburn [Unknown]
  - Erythema [Unknown]

NARRATIVE: CASE EVENT DATE: 20240715
